FAERS Safety Report 4377538-9 (Version None)
Quarter: 2004Q2

REPORT INFORMATION
  Report Type: 
  Country: None (occurrence: None)
  Receive Date: 20040615
  Receipt Date: 20020516
  Transmission Date: 20050107
  Serious: Yes (Hospitalization, Disabling, Other)
  Sender: FDA-Public Use
  Company Number: US-MERCK-0205USA02063

PATIENT
  Age: 54 Year
  Sex: Male
  Weight: 80 kg

DRUGS (22)
  1. VIOXX [Suspect]
     Indication: ARTHRALGIA
     Route: 048
     Dates: start: 20020402
  2. VIOXX [Suspect]
     Route: 048
     Dates: start: 19990729
  3. VIOXX [Suspect]
     Route: 048
     Dates: start: 20010118
  4. ZOLOFT [Concomitant]
     Route: 065
  5. SULFASALAZINE [Concomitant]
     Route: 065
  6. TRAZODONE HYDROCHLORIDE [Concomitant]
     Route: 065
  7. [THERAPY UNSPECIFIED] [Concomitant]
     Indication: PAIN
     Route: 065
     Dates: start: 19710101
  8. ASPIRIN [Concomitant]
     Route: 065
     Dates: start: 20000101
  9. WELLBUTRIN [Concomitant]
     Route: 065
     Dates: start: 19970201
  10. CODEINE [Concomitant]
     Route: 065
  11. FLEXERIL [Concomitant]
     Route: 065
  12. LOVASTATIN [Concomitant]
     Route: 065
     Dates: start: 20000101
  13. NAPROXEN [Concomitant]
     Route: 065
     Dates: start: 19950101, end: 19980101
  14. VIOXX [Suspect]
     Indication: ARTHRITIS
     Route: 048
     Dates: end: 20010101
  15. VIOXX [Suspect]
     Route: 065
     Dates: start: 20011001, end: 20020228
  16. VIOXX [Suspect]
     Route: 048
  17. VIOXX [Suspect]
     Route: 048
     Dates: start: 20020402
  18. VIOXX [Suspect]
     Route: 048
     Dates: start: 19990729
  19. VIOXX [Suspect]
     Route: 048
     Dates: start: 20010118
  20. VIOXX [Suspect]
     Route: 048
     Dates: end: 20010101
  21. VIOXX [Suspect]
     Route: 065
     Dates: start: 20011001, end: 20020228
  22. VIOXX [Suspect]
     Route: 048

REACTIONS (45)
  - ARRHYTHMIA [None]
  - ARTHRITIS [None]
  - BLINDNESS [None]
  - BRONCHITIS [None]
  - CATHETER SITE HAEMORRHAGE [None]
  - CHOLECYSTITIS CHRONIC [None]
  - CHOLELITHIASIS [None]
  - CORONARY ARTERY DISEASE [None]
  - DRUG INEFFECTIVE [None]
  - DUODENAL SCARRING [None]
  - EMOTIONAL DISTRESS [None]
  - FIBROMYALGIA [None]
  - GASTRITIS [None]
  - GASTROOESOPHAGEAL REFLUX DISEASE [None]
  - HAEMATURIA [None]
  - HERPES SIMPLEX [None]
  - HIATUS HERNIA [None]
  - HYPERMETROPIA [None]
  - HYPERREFLEXIA [None]
  - HYPERSENSITIVITY [None]
  - INGUINAL HERNIA [None]
  - IRRITABLE BOWEL SYNDROME [None]
  - JOINT CONTRACTURE [None]
  - MENTAL DISORDER [None]
  - MORTON'S NEUROMA [None]
  - MUSCLE CONTRACTIONS INVOLUNTARY [None]
  - MYOCARDIAL INFARCTION [None]
  - NASOPHARYNGITIS [None]
  - NAUSEA [None]
  - NECK PAIN [None]
  - NEPHROLITHIASIS [None]
  - OVERDOSE [None]
  - POLYCYTHAEMIA [None]
  - PRESBYOPIA [None]
  - ROAD TRAFFIC ACCIDENT [None]
  - SKIN DISCOLOURATION [None]
  - SKIN LACERATION [None]
  - TYMPANIC MEMBRANE PERFORATION [None]
  - UPPER RESPIRATORY TRACT INFECTION [None]
  - VERTIGO POSITIONAL [None]
  - VISION BLURRED [None]
  - VITREOUS FLOATERS [None]
  - VOMITING [None]
  - WHIPLASH INJURY [None]
  - WOUND INFECTION [None]
